FAERS Safety Report 14632257 (Version 1)
Quarter: 2018Q1

REPORT INFORMATION
  Report Type: Spontaneous
  Country: US (occurrence: US)
  Receive Date: 20180313
  Receipt Date: 20180313
  Transmission Date: 20180509
  Serious: No
  Sender: FDA-Public Use
  Company Number: US-ALLERGAN-1733340US

PATIENT
  Age: 80 Year
  Sex: Female

DRUGS (3)
  1. OXYBUTYNIN UNK [Suspect]
     Active Substance: OXYBUTYNIN
     Indication: BLADDER DISORDER
     Dosage: UNK
     Route: 062
     Dates: start: 201704
  2. NORTHERA [Suspect]
     Active Substance: DROXIDOPA
     Indication: PRODUCT USED FOR UNKNOWN INDICATION
     Dosage: UNK, QD
     Route: 048
     Dates: end: 20170418
  3. NORTHERA [Suspect]
     Active Substance: DROXIDOPA
     Dosage: 200 MG, THRICE WEEKLY
     Route: 048
     Dates: start: 20170421

REACTIONS (10)
  - Nausea [Unknown]
  - Malaise [Unknown]
  - Limb discomfort [Unknown]
  - Syncope [Unknown]
  - Visual impairment [Unknown]
  - Insomnia [Unknown]
  - Feeling abnormal [Unknown]
  - Gait disturbance [Unknown]
  - Dizziness [Unknown]
  - Blood pressure systolic increased [Unknown]

NARRATIVE: CASE EVENT DATE: 2017
